FAERS Safety Report 19982657 (Version 1)
Quarter: 2021Q4

REPORT INFORMATION
  Report Type: Spontaneous
  Country: BG (occurrence: BG)
  Receive Date: 20211022
  Receipt Date: 20211022
  Transmission Date: 20220303
  Serious: Yes (Hospitalization)
  Sender: FDA-Public Use
  Company Number: BG-ASTRAZENECA-2020SF33259

PATIENT
  Age: 50 Year
  Sex: Female

DRUGS (54)
  1. DURVALUMAB [Suspect]
     Active Substance: DURVALUMAB
     Indication: Ovarian cancer metastatic
     Route: 042
     Dates: start: 20201104, end: 20201104
  2. DURVALUMAB [Suspect]
     Active Substance: DURVALUMAB
     Route: 042
     Dates: start: 20200423, end: 20200423
  3. DURVALUMAB [Suspect]
     Active Substance: DURVALUMAB
     Route: 042
     Dates: start: 20201012, end: 20201012
  4. DURVALUMAB [Suspect]
     Active Substance: DURVALUMAB
     Route: 042
     Dates: start: 20200702, end: 20200702
  5. DURVALUMAB [Suspect]
     Active Substance: DURVALUMAB
     Route: 042
     Dates: start: 20200402, end: 20200723
  6. DURVALUMAB [Suspect]
     Active Substance: DURVALUMAB
     Route: 042
     Dates: start: 20200723, end: 20200723
  7. DURVALUMAB [Suspect]
     Active Substance: DURVALUMAB
     Route: 042
     Dates: start: 20201127, end: 20210511
  8. DURVALUMAB [Suspect]
     Active Substance: DURVALUMAB
     Route: 042
     Dates: start: 20200911, end: 20200911
  9. DURVALUMAB [Suspect]
     Active Substance: DURVALUMAB
     Route: 042
     Dates: start: 20200820, end: 20200820
  10. DURVALUMAB [Suspect]
     Active Substance: DURVALUMAB
     Route: 042
     Dates: start: 20200611, end: 20200611
  11. BEVACIZUMAB [Suspect]
     Active Substance: BEVACIZUMAB
     Indication: Ovarian cancer metastatic
     Route: 065
     Dates: start: 20210216, end: 20210216
  12. BEVACIZUMAB [Suspect]
     Active Substance: BEVACIZUMAB
     Route: 065
     Dates: start: 20210511, end: 20210511
  13. BEVACIZUMAB [Suspect]
     Active Substance: BEVACIZUMAB
     Route: 065
     Dates: start: 20210330, end: 20210330
  14. BEVACIZUMAB [Suspect]
     Active Substance: BEVACIZUMAB
     Route: 065
     Dates: start: 20201012, end: 20201012
  15. BEVACIZUMAB [Suspect]
     Active Substance: BEVACIZUMAB
     Route: 065
     Dates: start: 20200911, end: 20200911
  16. BEVACIZUMAB [Suspect]
     Active Substance: BEVACIZUMAB
     Route: 065
     Dates: start: 20201104, end: 20201104
  17. BEVACIZUMAB [Suspect]
     Active Substance: BEVACIZUMAB
     Route: 065
     Dates: start: 20210309, end: 20210309
  18. BEVACIZUMAB [Suspect]
     Active Substance: BEVACIZUMAB
     Route: 065
     Dates: start: 20200402, end: 20200402
  19. BEVACIZUMAB [Suspect]
     Active Substance: BEVACIZUMAB
     Route: 065
     Dates: start: 20200702, end: 20200702
  20. BEVACIZUMAB [Suspect]
     Active Substance: BEVACIZUMAB
     Route: 065
     Dates: start: 20210420, end: 20210420
  21. BEVACIZUMAB [Suspect]
     Active Substance: BEVACIZUMAB
     Route: 065
     Dates: start: 20201127, end: 20201127
  22. BEVACIZUMAB [Suspect]
     Active Substance: BEVACIZUMAB
     Route: 065
     Dates: start: 20200310, end: 20200310
  23. BEVACIZUMAB [Suspect]
     Active Substance: BEVACIZUMAB
     Route: 065
     Dates: start: 20210126, end: 20210126
  24. BEVACIZUMAB [Suspect]
     Active Substance: BEVACIZUMAB
     Route: 065
     Dates: start: 20200611, end: 20200723
  25. BEVACIZUMAB [Suspect]
     Active Substance: BEVACIZUMAB
     Route: 065
     Dates: start: 20200723, end: 20200723
  26. BEVACIZUMAB [Suspect]
     Active Substance: BEVACIZUMAB
     Route: 065
     Dates: start: 20200820, end: 20200820
  27. BEVACIZUMAB [Suspect]
     Active Substance: BEVACIZUMAB
     Route: 065
     Dates: start: 20210105, end: 20210105
  28. OLAPARIB [Suspect]
     Active Substance: OLAPARIB
     Indication: Ovarian cancer metastatic
     Route: 048
     Dates: start: 20201002, end: 20201011
  29. OLAPARIB [Suspect]
     Active Substance: OLAPARIB
     Route: 048
     Dates: start: 20200820, end: 20200910
  30. OLAPARIB [Suspect]
     Active Substance: OLAPARIB
     Route: 048
     Dates: start: 20200911, end: 20201001
  31. OLAPARIB [Suspect]
     Active Substance: OLAPARIB
     Route: 048
     Dates: start: 20201127, end: 20201217
  32. OLAPARIB [Suspect]
     Active Substance: OLAPARIB
     Route: 048
     Dates: start: 20201104, end: 20201124
  33. OLAPARIB [Suspect]
     Active Substance: OLAPARIB
     Route: 048
     Dates: start: 20201125, end: 20201126
  34. OLAPARIB [Suspect]
     Active Substance: OLAPARIB
     Route: 048
     Dates: start: 20201218, end: 20210104
  35. OLAPARIB [Suspect]
     Active Substance: OLAPARIB
     Route: 048
     Dates: start: 20210105, end: 20210510
  36. OLAPARIB [Suspect]
     Active Substance: OLAPARIB
     Route: 048
     Dates: start: 20201102, end: 20201103
  37. OLAPARIB [Suspect]
     Active Substance: OLAPARIB
     Route: 048
     Dates: start: 20201012, end: 20201101
  38. OLAPARIB [Suspect]
     Active Substance: OLAPARIB
     Route: 048
     Dates: start: 20210511
  39. PACLITAXEL [Concomitant]
     Active Substance: PACLITAXEL
     Indication: Ovarian cancer metastatic
     Dates: start: 20200723, end: 20200723
  40. PACLITAXEL [Concomitant]
     Active Substance: PACLITAXEL
     Dates: start: 20200611, end: 20200611
  41. PACLITAXEL [Concomitant]
     Active Substance: PACLITAXEL
     Dates: start: 20200423, end: 20200423
  42. PACLITAXEL [Concomitant]
     Active Substance: PACLITAXEL
     Dates: start: 20200310, end: 20200310
  43. PACLITAXEL [Concomitant]
     Active Substance: PACLITAXEL
     Dates: start: 20200702, end: 20200702
  44. PACLITAXEL [Concomitant]
     Active Substance: PACLITAXEL
     Dates: start: 20200402, end: 20200402
  45. INDAPAMIDE [Concomitant]
     Active Substance: INDAPAMIDE
     Indication: Hypertension
     Route: 048
     Dates: start: 20170830
  46. VILDAGLIPTIN [Concomitant]
     Active Substance: VILDAGLIPTIN
     Indication: Type 2 diabetes mellitus
     Route: 048
     Dates: start: 20190718
  47. CARBOPLATIN [Concomitant]
     Active Substance: CARBOPLATIN
     Indication: Ovarian cancer metastatic
     Dates: start: 20200723, end: 20200723
  48. CARBOPLATIN [Concomitant]
     Active Substance: CARBOPLATIN
     Dates: start: 20200310, end: 20200310
  49. CARBOPLATIN [Concomitant]
     Active Substance: CARBOPLATIN
     Dates: start: 20200423, end: 20200423
  50. CARBOPLATIN [Concomitant]
     Active Substance: CARBOPLATIN
     Dates: start: 20200402, end: 20200402
  51. CARBOPLATIN [Concomitant]
     Active Substance: CARBOPLATIN
     Dates: start: 20200611, end: 20200611
  52. CARBOPLATIN [Concomitant]
     Active Substance: CARBOPLATIN
     Dates: start: 20200702, end: 20200702
  53. METFORMIN [Concomitant]
     Active Substance: METFORMIN HYDROCHLORIDE
     Indication: Type 2 diabetes mellitus
     Dates: start: 20190718
  54. NEBIVOLOL [Concomitant]
     Active Substance: NEBIVOLOL
     Indication: Hypertension
     Route: 048
     Dates: start: 20170714

REACTIONS (1)
  - Anaemia [Recovered/Resolved]

NARRATIVE: CASE EVENT DATE: 20201002
